FAERS Safety Report 11982873 (Version 1)
Quarter: 2016Q1

REPORT INFORMATION
  Report Type: Spontaneous
  Country: US (occurrence: US)
  Receive Date: 20160201
  Receipt Date: 20160201
  Transmission Date: 20160526
  Serious: No
  Sender: FDA-Public Use
  Company Number: US-WATSON-2015-10929

PATIENT
  Sex: Female

DRUGS (1)
  1. PENTAZOCINE AND NALOXONE [Suspect]
     Active Substance: NALOXONE HYDROCHLORIDE\PENTAZOCINE HYDROCHLORIDE
     Indication: PRODUCT USED FOR UNKNOWN INDICATION
     Route: 065

REACTIONS (9)
  - Nausea [Unknown]
  - Arthralgia [Unknown]
  - Restlessness [Unknown]
  - Headache [Unknown]
  - Somnolence [Unknown]
  - Drug interaction [Unknown]
  - Oropharyngeal pain [Unknown]
  - Feeling cold [Unknown]
  - Lacrimation increased [Unknown]
